FAERS Safety Report 16017224 (Version 1)
Quarter: 2019Q1

REPORT INFORMATION
  Report Type: Spontaneous
  Country: US (occurrence: US)
  Receive Date: 20190228
  Receipt Date: 20190228
  Transmission Date: 20190418
  Serious: Yes (Other)
  Sender: FDA-Public Use
  Company Number: US-TEVA-2019-US-1017239

PATIENT
  Age: 42 Year
  Sex: Female

DRUGS (10)
  1. SEVELAMER [Concomitant]
     Active Substance: SEVELAMER
     Dosage: 3 TIMES DAILY
     Route: 065
  2. METRONIDAZOLE. [Concomitant]
     Active Substance: METRONIDAZOLE
     Indication: BACTERIAL INFECTION
     Route: 065
  3. CINACALCET. [Concomitant]
     Active Substance: CINACALCET
     Dosage: TITRATED UP TO A MAXIMUM DOSE OF 120 MG/DAY
     Route: 065
  4. PIPERACILLIN/TAZOBACTAM [Concomitant]
     Active Substance: PIPERACILLIN SODIUM\TAZOBACTAM SODIUM
     Route: 065
  5. CALCIUM GLUCONATE. [Suspect]
     Active Substance: CALCIUM GLUCONATE
     Indication: HUNGRY BONE SYNDROME
     Route: 042
  6. LINEZOLID. [Concomitant]
     Active Substance: LINEZOLID
     Route: 065
  7. CALCITRIOL. [Suspect]
     Active Substance: CALCITRIOL
     Indication: HUNGRY BONE SYNDROME
     Route: 065
  8. LEVOFLOXACIN. [Concomitant]
     Active Substance: LEVOFLOXACIN
     Indication: BACTERIAL INFECTION
     Route: 065
  9. CALCIUM CITRATE-VITAMIN D3 [Suspect]
     Active Substance: CALCIUM CITRATE\CHOLECALCIFEROL
     Indication: HUNGRY BONE SYNDROME
     Dosage: FOUR TIMES DAILY
     Route: 048
  10. SODIUM THIOSULFATE [Suspect]
     Active Substance: SODIUM THIOSULFATE
     Indication: CALCIPHYLAXIS
     Dosage: 3 TIMES A WEEK
     Route: 042

REACTIONS (4)
  - Off label use [Unknown]
  - Condition aggravated [Recovered/Resolved]
  - Calciphylaxis [Recovered/Resolved]
  - Haemodialysis [None]
